FAERS Safety Report 22640225 (Version 1)
Quarter: 2023Q2

REPORT INFORMATION
  Report Type: Spontaneous
  Country: US (occurrence: None)
  Receive Date: 20230623
  Receipt Date: 20230623
  Transmission Date: 20230722
  Serious: No
  Sender: FDA-Public Use
  Company Number: None

PATIENT
  Sex: Male

DRUGS (11)
  1. ABIRATERONE ACETATE [Suspect]
     Active Substance: ABIRATERONE ACETATE
     Indication: Prostate cancer
     Dosage: 2 TABS QD PO
     Route: 048
  2. ASPIRIN [Concomitant]
  3. CALCIUM [Concomitant]
  4. COREG [Concomitant]
     Active Substance: CARVEDILOL
  5. CRESTOR [Concomitant]
  6. ELIGARD [Concomitant]
     Active Substance: LEUPROLIDE ACETATE
  7. GLIMEPIRIDE [Concomitant]
  8. LISINOPRIL [Concomitant]
  9. METFORMIN [Concomitant]
  10. VITAMINS [Concomitant]
     Active Substance: VITAMINS
  11. PANTOPRAZOLE [Concomitant]
     Active Substance: PANTOPRAZOLE

REACTIONS (2)
  - Musculoskeletal injury [None]
  - Therapy interrupted [None]
